FAERS Safety Report 6580710-0 (Version None)
Quarter: 2010Q1

REPORT INFORMATION
  Report Type: 
  Country: None (occurrence: None)
  Receive Date: 20100212
  Receipt Date: 20100203
  Transmission Date: 20100710
  Serious: Yes (Death, Hospitalization, Other)
  Sender: FDA-Public Use
  Company Number: FR-MERCK-1002FRA00017

PATIENT
  Age: 17 Year
  Sex: Female

DRUGS (5)
  1. SINGULAIR [Suspect]
     Route: 048
     Dates: start: 20091019, end: 20091019
  2. COLCHICINE [Suspect]
     Route: 048
     Dates: start: 20091019, end: 20091019
  3. PIROXICAM [Suspect]
     Route: 048
     Dates: start: 20091019, end: 20091019
  4. LOPERAMIDE HYDROCHLORIDE [Suspect]
     Route: 048
     Dates: start: 20091019, end: 20091019
  5. DI-ANTALVIC [Suspect]
     Route: 048
     Dates: start: 20091019, end: 20091019

REACTIONS (2)
  - COMPLETED SUICIDE [None]
  - DRUG TOXICITY [None]
